FAERS Safety Report 7701568-X (Version None)
Quarter: 2011Q3

REPORT INFORMATION
  Report Type: 
  Country: None (occurrence: None)
  Receive Date: 20110817
  Receipt Date: 20110808
  Transmission Date: 20111222
  Serious: Yes (Death, Hospitalization)
  Sender: FDA-Public Use
  Company Number: EU-2011-10090

PATIENT
  Sex: Male

DRUGS (2)
  1. PLETAL [Suspect]
     Dosage: ORAL
     Route: 048
     Dates: start: 20100901
  2. TRENTAL (PENTOXYIFYLLINE) [Concomitant]

REACTIONS (14)
  - BLISTER [None]
  - INFLAMMATORY MARKER INCREASED [None]
  - UNRESPONSIVE TO STIMULI [None]
  - EYE SWELLING [None]
  - GENERAL PHYSICAL HEALTH DETERIORATION [None]
  - LACRIMATION INCREASED [None]
  - VISUAL ACUITY REDUCED [None]
  - HEADACHE [None]
  - VISION BLURRED [None]
  - OCULAR ICTERUS [None]
  - CEREBRAL HAEMORRHAGE [None]
  - CEREBROVASCULAR ACCIDENT [None]
  - CARDIOVASCULAR DISORDER [None]
  - PYREXIA [None]
